FAERS Safety Report 4319045-5 (Version None)
Quarter: 2004Q1

REPORT INFORMATION
  Report Type: 
  Country: None (occurrence: None)
  Receive Date: 20040312
  Receipt Date: 20031125
  Transmission Date: 20041129
  Serious: Yes (Life-Threatening)
  Sender: FDA-Public Use
  Company Number: BASF-03-016

PATIENT
  Age: 72 Year
  Sex: Female

DRUGS (11)
  1. IBUPROFEN TABLETS, 400MG [Suspect]
     Indication: PAIN
  2. INSULIN [Concomitant]
  3. COUMADIN [Concomitant]
  4. VASOTEC [Concomitant]
  5. ALLOPURINOL [Concomitant]
  6. ZAROXOLYN [Concomitant]
  7. LANOXIN [Concomitant]
  8. BUMEX [Concomitant]
  9. COLCHICINE [Concomitant]
  10. PROCRIT (BRYTHROPOLETIN) [Concomitant]
  11. HOME OXYGEN [Concomitant]

REACTIONS (3)
  - DRUG TOXICITY [None]
  - OVERDOSE [None]
  - RENAL FAILURE ACUTE [None]
